FAERS Safety Report 7680917-5 (Version None)
Quarter: 2011Q3

REPORT INFORMATION
  Report Type: 
  Country: None (occurrence: None)
  Receive Date: 20110812
  Receipt Date: 20110808
  Transmission Date: 20111222
  Serious: Yes (Hospitalization)
  Sender: FDA-Public Use
  Company Number: US-ABBOTT-11P-163-0844433-00

PATIENT
  Age: 12 Year
  Sex: Male

DRUGS (10)
  1. LEVETIRACETAM [Suspect]
  2. ZONISAMIDE [Concomitant]
  3. CARBAMAZEPINE [Suspect]
     Indication: COMPLEX PARTIAL SEIZURES
  4. LEVETIRACETAM [Suspect]
     Indication: MYOCLONUS
  5. VALPROATE SODIUM [Suspect]
     Indication: MYOCLONUS
  6. LEVETIRACETAM [Suspect]
     Dosage: DAILY
  7. LEVETIRACETAM [Suspect]
     Dosage: DAILY
  8. LEVETIRACETAM [Suspect]
  9. LEVETIRACETAM [Suspect]
  10. ZONISAMIDE [Concomitant]
     Indication: PRODUCT USED FOR UNKNOWN INDICATION

REACTIONS (11)
  - CONDITION AGGRAVATED [None]
  - GRAND MAL CONVULSION [None]
  - HYPOTONIA [None]
  - FALL [None]
  - BALANCE DISORDER [None]
  - DRUG INEFFECTIVE [None]
  - FEELING JITTERY [None]
  - MYOCLONUS [None]
  - MUSCLE TWITCHING [None]
  - HEAD TITUBATION [None]
  - FATIGUE [None]
